FAERS Safety Report 7038493-6 (Version None)
Quarter: 2010Q4

REPORT INFORMATION
  Report Type: 
  Country: None (occurrence: None)
  Receive Date: 20101011
  Receipt Date: 20100121
  Transmission Date: 20110411
  Serious: No
  Sender: FDA-Public Use
  Company Number: US-PFIZER INC-2010009817

PATIENT
  Sex: Female
  Weight: 95 kg

DRUGS (3)
  1. GABAPENTIN [Suspect]
     Indication: NERVE INJURY
     Dosage: 300 MG, 3X/DAY
     Route: 048
  2. CELEBREX [Concomitant]
     Indication: ARTHRITIS
     Dosage: 100 MG, 2X/DAY
     Route: 048
  3. NEXIUM [Concomitant]
     Indication: ANTACID THERAPY
     Dosage: 40 MG, DAILY
     Route: 048

REACTIONS (2)
  - DYSGEUSIA [None]
  - TONGUE DISCOLOURATION [None]
